FAERS Safety Report 4794523-3 (Version None)
Quarter: 2005Q4

REPORT INFORMATION
  Report Type: 
  Country: None (occurrence: None)
  Receive Date: 20051011
  Receipt Date: 20050913
  Transmission Date: 20060501
  Serious: Yes (Hospitalization)
  Sender: FDA-Public Use
  Company Number: US-BRISTOL-MYERS SQUIBB COMPANY-13114582

PATIENT
  Age: 17 Year
  Sex: Female

DRUGS (3)
  1. ARIPIPRAZOLE [Suspect]
     Indication: SCHIZOPHRENIA
     Route: 048
     Dates: start: 20050606, end: 20050906
  2. ARIPIPRAZOLE [Suspect]
     Indication: BIPOLAR DISORDER
     Route: 048
     Dates: start: 20050606, end: 20050906
  3. SEROQUEL [Suspect]

REACTIONS (2)
  - INTENTIONAL DRUG MISUSE [None]
  - INTENTIONAL SELF-INJURY [None]
